FAERS Safety Report 9504665 (Version 3)
Quarter: 2013Q3

REPORT INFORMATION
  Report Type: Spontaneous
  Country: US (occurrence: US)
  Receive Date: 20130906
  Receipt Date: 20130919
  Transmission Date: 20140515
  Serious: Yes (Disabling, Other)
  Sender: FDA-Public Use
  Company Number: US-ALLERGAN-1312241US

PATIENT
  Age: 58 Year
  Sex: Female

DRUGS (1)
  1. LATISSE 0.03% [Suspect]
     Indication: GROWTH OF EYELASHES
     Dosage: 2 GTT, UNK
     Route: 061
     Dates: start: 201101, end: 201104

REACTIONS (5)
  - Road traffic accident [Recovered/Resolved]
  - Bedridden [Recovered/Resolved]
  - Post-traumatic pain [Recovered/Resolved]
  - Blepharal pigmentation [Recovering/Resolving]
  - Drug ineffective [Unknown]
